FAERS Safety Report 6737001-4 (Version None)
Quarter: 2010Q2

REPORT INFORMATION
  Report Type: 
  Country: None (occurrence: None)
  Receive Date: 20100523
  Receipt Date: 20100219
  Transmission Date: 20101027
  Serious: No
  Sender: FDA-Public Use
  Company Number: US-ALLERGAN-1002279US

PATIENT
  Age: 67 Year
  Sex: Female

DRUGS (1)
  1. COMBIGAN [Suspect]
     Indication: INTRAOCULAR PRESSURE INCREASED
     Dosage: BID
     Route: 047
     Dates: start: 20100218

REACTIONS (2)
  - EYE IRRITATION [None]
  - EYE PAIN [None]
